FAERS Safety Report 6719579-X (Version None)
Quarter: 2010Q2

REPORT INFORMATION
  Report Type: 
  Country: None (occurrence: None)
  Receive Date: 20100511
  Receipt Date: 20100427
  Transmission Date: 20101027
  Serious: Yes (Hospitalization)
  Sender: FDA-Public Use
  Company Number: US-ELI_LILLY_AND_COMPANY-US200812005116

PATIENT
  Sex: Female

DRUGS (13)
  1. FORTEO [Suspect]
     Indication: OSTEOPOROSIS
     Dosage: 20 UG, DAILY (1/D)
     Dates: start: 20080501, end: 20090901
  2. FORTEO [Suspect]
     Dosage: 20 UG, DAILY (1/D)
     Dates: start: 20100309, end: 20100301
  3. LEVOTHYROXINE SODIUM [Concomitant]
  4. NADOLOL [Concomitant]
  5. RAMADOL [Concomitant]
  6. KLONOPIN [Concomitant]
  7. CELEXA [Concomitant]
  8. NORPACE [Concomitant]
     Dosage: 100 MG, 2/D
  9. WARFARIN SODIUM [Concomitant]
     Dosage: 2.5 MG, QOD
  10. WARFARIN SODIUM [Concomitant]
     Dosage: 5 MG, QOD
  11. SIMVASTATIN [Concomitant]
     Dosage: 20 MG, DAILY (1/D)
  12. ARICEPT [Concomitant]
     Dosage: 5 MG, DAILY (1/D)
  13. CALCIUM [Concomitant]
     Dosage: 1200 MG, DAILY (1/D)

REACTIONS (7)
  - ASPARTATE AMINOTRANSFERASE INCREASED [None]
  - ATRIAL FIBRILLATION [None]
  - BLOOD ALKALINE PHOSPHATASE INCREASED [None]
  - BLOOD CALCIUM INCREASED [None]
  - HAEMOGLOBIN DECREASED [None]
  - RED BLOOD CELL COUNT DECREASED [None]
  - RED CELL DISTRIBUTION WIDTH INCREASED [None]
